FAERS Safety Report 18423693 (Version 4)
Quarter: 2022Q3

REPORT INFORMATION
  Report Type: Other
  Country: US (occurrence: None)
  Receive Date: 20201024
  Receipt Date: 20220905
  Transmission Date: 20221027
  Serious: Yes (Hospitalization, Other)
  Sender: FDA-Public Use
  Company Number: US-ROCHE-2696327

PATIENT
  Sex: Female
  Weight: 59.928 kg

DRUGS (18)
  1. OCREVUS [Suspect]
     Active Substance: OCRELIZUMAB
     Indication: Primary progressive multiple sclerosis
     Dosage: ONGOING YES
     Route: 042
     Dates: start: 20180605
  2. RECLAST [Suspect]
     Active Substance: ZOLEDRONIC ACID
     Indication: Product used for unknown indication
     Route: 065
     Dates: start: 2018
  3. SHINGRIX [Suspect]
     Active Substance: RECOMBINANT VARICELLA ZOSTER VIRUS (VZV) GLYCOPROTEIN E
     Indication: Product used for unknown indication
     Route: 065
     Dates: start: 2019
  4. VITAMIN D3 [Concomitant]
     Active Substance: CHOLECALCIFEROL
     Dosage: ONGOING YES
     Route: 048
  5. BONE STRENGTH [Concomitant]
     Dosage: CONTAINS CALCIUM, MAGNESIUM AND VITAMINS K2 AND K3 ;ONGOING: YES
     Route: 048
  6. ACIDOPHILUS [Concomitant]
     Active Substance: LACTOBACILLUS ACIDOPHILUS
     Dosage: ONGOING YES
     Route: 048
  7. CRANBERRY [Concomitant]
     Active Substance: CRANBERRY
     Dosage: ONGOING YES
     Route: 048
  8. MAGNESIUM MALATE [Concomitant]
     Active Substance: MAGNESIUM MALATE
     Dosage: ONGOING YES
     Route: 048
  9. BISACODYL [Concomitant]
     Active Substance: BISACODYL
     Indication: Constipation
     Dosage: ONGOING YES
     Route: 048
  10. DRAMAMINE [Concomitant]
     Active Substance: DIMENHYDRINATE
     Dosage: ONGOING YES
     Route: 048
  11. CANNA OIL [Concomitant]
     Indication: Multiple sclerosis
     Dosage: ONGOING YES
  12. CANNABIS SATIVA SUBSP. INDICA TOP [Concomitant]
     Active Substance: CANNABIS SATIVA SUBSP. INDICA TOP
     Indication: Multiple sclerosis
     Dosage: ONGOING YES
     Route: 061
  13. SODIUM CHLORIDE [Concomitant]
     Active Substance: SODIUM CHLORIDE
  14. ACETAMINOPHEN [Concomitant]
     Active Substance: ACETAMINOPHEN
  15. DIPHENHYDRAMINE HYDROCHLORIDE [Concomitant]
     Active Substance: DIPHENHYDRAMINE HYDROCHLORIDE
  16. METHYLPREDNISOLONE [Concomitant]
     Active Substance: METHYLPREDNISOLONE
  17. HOMEOPATHICS [Concomitant]
     Active Substance: HOMEOPATHICS
  18. MODERNA COVID-19 VACCINE [Concomitant]
     Active Substance: ELASOMERAN
     Dates: start: 202110

REACTIONS (9)
  - Urinary tract infection [Recovered/Resolved]
  - Paralysis [Recovered/Resolved]
  - Urinary incontinence [Recovered/Resolved]
  - Endometrial adenocarcinoma [Unknown]
  - Paralysis [Recovered/Resolved]
  - Incontinence [Recovered/Resolved]
  - Asthenia [Not Recovered/Not Resolved]
  - Mobility decreased [Not Recovered/Not Resolved]
  - Weight decreased [Unknown]

NARRATIVE: CASE EVENT DATE: 20180101
